FAERS Safety Report 4924717-5 (Version None)
Quarter: 2006Q1

REPORT INFORMATION
  Report Type: 
  Country: None (occurrence: None)
  Receive Date: 20060222
  Receipt Date: 20060206
  Transmission Date: 20060701
  Serious: Yes (Hospitalization)
  Sender: FDA-Public Use
  Company Number: FACT0600069

PATIENT
  Age: 18 Year
  Sex: Female

DRUGS (1)
  1. FACTIVE                     (GEMIFLOACIN MESYLATE) [Suspect]
     Indication: RESPIRATORY TRACT INFECTION BACTERIAL

REACTIONS (5)
  - ORAL MUCOSAL BLISTERING [None]
  - PRURITUS [None]
  - SKIN DISCOLOURATION [None]
  - URTICARIA [None]
  - VAGINAL MUCOSAL BLISTERING [None]
